FAERS Safety Report 16242177 (Version 1)
Quarter: 2019Q2

REPORT INFORMATION
  Report Type: Spontaneous
  Country: DK (occurrence: DK)
  Receive Date: 20190426
  Receipt Date: 20190426
  Transmission Date: 20190711
  Serious: Yes (Hospitalization)
  Sender: FDA-Public Use
  Company Number: DK-ROCHE-2307049

PATIENT
  Age: 72 Year
  Sex: Female
  Weight: 91 kg

DRUGS (5)
  1. ZOMETA [Suspect]
     Active Substance: ZOLEDRONIC ACID
     Indication: METASTASES TO BONE
     Dosage: DOSIS: INFUSION HVER 3-4 UGE, STYRKE: 4 MG
     Route: 042
     Dates: start: 20110616, end: 201407
  2. XGEVA [Suspect]
     Active Substance: DENOSUMAB
     Indication: METASTASES TO BONE
     Dosage: DOSIS: SUBKUTAN INFUSION HVER 4. UGE, STYRKE: 120 MG
     Route: 058
     Dates: start: 20140701
  3. TAMOXIFEN [Concomitant]
     Active Substance: TAMOXIFEN
     Indication: BREAST CANCER
     Route: 065
     Dates: start: 201112
  4. BONDRONAT [IBANDRONATE SODIUM] [Suspect]
     Active Substance: IBANDRONATE SODIUM
     Indication: METASTASES TO BONE
     Dosage: TABLET 1 GANG I ALT, STYRKE: 50 MG (50 MG)
     Route: 048
     Dates: start: 20110606, end: 20110606
  5. LOSARTAN. [Concomitant]
     Active Substance: LOSARTAN
     Indication: HYPERTENSION

REACTIONS (6)
  - Swelling [Recovered/Resolved]
  - Osteonecrosis of jaw [Recovered/Resolved]
  - Exposed bone in jaw [Recovered/Resolved]
  - Erythema [Recovered/Resolved]
  - Jaw operation [Recovered/Resolved]
  - Oral pustule [Recovered/Resolved]

NARRATIVE: CASE EVENT DATE: 2016
